FAERS Safety Report 9677631 (Version 1)
Quarter: 2013Q4

REPORT INFORMATION
  Report Type: Spontaneous
  Country: DE (occurrence: DE)
  Receive Date: 20131108
  Receipt Date: 20131108
  Transmission Date: 20140711
  Serious: Yes (Hospitalization, Other)
  Sender: FDA-Public Use
  Company Number: DE-NOVOPROD-391170

PATIENT
  Age: 71 Year
  Sex: Male
  Weight: 92 kg

DRUGS (10)
  1. LEVEMIR [Suspect]
     Indication: TYPE 2 DIABETES MELLITUS
     Dosage: 40 U, QD
     Route: 058
     Dates: end: 20131024
  2. NOVORAPID [Suspect]
     Indication: TYPE 2 DIABETES MELLITUS
     Dosage: UNK UNK, PRN
     Route: 065
     Dates: end: 20131024
  3. PANTOZOL                           /01263204/ [Concomitant]
     Indication: PRODUCT USED FOR UNKNOWN INDICATION
     Dosage: 40 MG, QD
  4. DIGITOXIN [Concomitant]
     Indication: CARDIAC FAILURE
     Dosage: 0.1 MG, UNK
  5. CITALOPRAM [Concomitant]
     Indication: DEPRESSION
     Dosage: 20 MG
  6. TORASEMID [Concomitant]
     Indication: CARDIAC FAILURE
     Dosage: 10 MG
  7. RAMIPRIL [Concomitant]
     Indication: CARDIAC FAILURE
     Dosage: 2.5 MG
  8. LYRICA [Concomitant]
     Indication: HYPERTENSION
     Dosage: Q
  9. MARCUMAR [Concomitant]
     Indication: ATRIAL FIBRILLATION
     Dosage: UNK, PRN
  10. SYMBICORT [Concomitant]
     Indication: CHRONIC OBSTRUCTIVE PULMONARY DISEASE
     Dosage: UNK, BID

REACTIONS (2)
  - Loss of consciousness [Recovered/Resolved]
  - Hypoglycaemia [Recovered/Resolved]
